FAERS Safety Report 7398096-0 (Version None)
Quarter: 2011Q2

REPORT INFORMATION
  Report Type: 
  Country: None (occurrence: None)
  Receive Date: 20110406
  Receipt Date: 20110329
  Transmission Date: 20111010
  Serious: Yes (Other)
  Sender: FDA-Public Use
  Company Number: US-AMGEN-USASP2011016907

PATIENT
  Age: 52 Year
  Sex: Female

DRUGS (2)
  1. ENBREL [Suspect]
     Indication: RHEUMATOID ARTHRITIS
     Dosage: 50 MG, QWK
     Dates: start: 20090101
  2. METHOTREXATE [Concomitant]

REACTIONS (12)
  - GLOSSITIS [None]
  - PAIN IN EXTREMITY [None]
  - HAEMOGLOBIN DECREASED [None]
  - RASH MACULAR [None]
  - BURNING SENSATION [None]
  - FACIAL PAIN [None]
  - ORAL DISCOMFORT [None]
  - EAR DISCOMFORT [None]
  - HEADACHE [None]
  - PARAESTHESIA ORAL [None]
  - DYSPEPSIA [None]
  - STOMATITIS [None]
